FAERS Safety Report 23112311 (Version 1)
Quarter: 2023Q4

REPORT INFORMATION
  Report Type: Spontaneous
  Country: PL (occurrence: PL)
  Receive Date: 20231027
  Receipt Date: 20231027
  Transmission Date: 20240109
  Serious: Yes (Other)
  Sender: FDA-Public Use
  Company Number: PL-KVK-TECH, INC-20231000141

PATIENT
  Age: 30 Year
  Sex: Male

DRUGS (1)
  1. METHYLPHENIDATE HYDROCHLORIDE [Suspect]
     Active Substance: METHYLPHENIDATE HYDROCHLORIDE
     Indication: Attention deficit hyperactivity disorder
     Dosage: UNK, UNKNOWN
     Route: 065

REACTIONS (2)
  - Coronary artery dissection [Recovering/Resolving]
  - Acute myocardial infarction [Recovering/Resolving]
